FAERS Safety Report 8183839-9 (Version None)
Quarter: 2012Q1

REPORT INFORMATION
  Report Type: 
  Country: None (occurrence: None)
  Receive Date: 20120305
  Receipt Date: 20120227
  Transmission Date: 20120608
  Serious: Yes (Other)
  Sender: FDA-Public Use
  Company Number: US-PFIZER INC-2011309732

PATIENT
  Sex: Female
  Weight: 59 kg

DRUGS (2)
  1. CRESTOR [Concomitant]
     Dosage: 20 MG, UNK
     Dates: start: 20110214
  2. CHANTIX [Suspect]
     Indication: SMOKING CESSATION THERAPY
     Dosage: 0.5 MG, DAILY
     Route: 048
     Dates: start: 20111201, end: 20111201

REACTIONS (7)
  - URTICARIA [None]
  - BLISTER [None]
  - NIGHT SWEATS [None]
  - DIZZINESS [None]
  - ERYTHEMA [None]
  - PRURITUS [None]
  - JOINT SWELLING [None]
